FAERS Safety Report 13909790 (Version 2)
Quarter: 2017Q3

REPORT INFORMATION
  Report Type: Spontaneous
  Country: US (occurrence: US)
  Receive Date: 20170828
  Receipt Date: 20170907
  Transmission Date: 20171127
  Serious: Yes (Other)
  Sender: FDA-Public Use
  Company Number: US-NOVEN PHARMACEUTICALS, INC.-US2017000991

PATIENT

DRUGS (3)
  1. DAYTRANA [Suspect]
     Active Substance: METHYLPHENIDATE
     Dosage: 10 MG, QD
     Route: 062
     Dates: start: 201708, end: 201708
  2. RISPERDAL [Concomitant]
     Active Substance: RISPERIDONE
     Indication: ABNORMAL BEHAVIOUR
     Dosage: (0.5MG)1 TABLET AT MORNING AND (0.5MG)1 TABLET AT NIGHT
  3. DAYTRANA [Suspect]
     Active Substance: METHYLPHENIDATE
     Indication: ATTENTION DEFICIT/HYPERACTIVITY DISORDER
     Dosage: 10 MG, QD
     Route: 062
     Dates: start: 201708, end: 201708

REACTIONS (19)
  - Drug dose omission [Recovered/Resolved]
  - Insomnia [Recovered/Resolved]
  - Hyperhidrosis [Recovered/Resolved]
  - Aggression [Recovered/Resolved]
  - Restlessness [Recovered/Resolved]
  - Application site erythema [Recovered/Resolved]
  - Fatigue [Recovered/Resolved]
  - Therapy cessation [Not Recovered/Not Resolved]
  - Frustration tolerance decreased [Recovered/Resolved]
  - Abnormal behaviour [Recovered/Resolved]
  - Physical assault [Recovered/Resolved]
  - Somnolence [Recovered/Resolved]
  - Incorrect drug administration duration [Recovered/Resolved]
  - Drug effect increased [Recovered/Resolved]
  - Miosis [Recovered/Resolved]
  - Feeling abnormal [Recovered/Resolved]
  - Confusional state [Recovered/Resolved]
  - Tremor [Recovered/Resolved]
  - Decreased appetite [Recovered/Resolved]

NARRATIVE: CASE EVENT DATE: 2017
